FAERS Safety Report 7079343 (Version 3)
Quarter: 2014Q2

REPORT INFORMATION
  Report Type: Spontaneous
  Country: US (occurrence: None)
  Receive Date: 20090803
  Receipt Date: 20140604
  Transmission Date: 20141212
  Serious: Yes (Hospitalization, Other)
  Sender: FDA-Public Use
  Company Number: 2009S1005919

PATIENT
  Age: 75 Year
  Sex: Male

DRUGS (9)
  1. FLEET PHOSPHO-SODA [Suspect]
     Indication: COLONOSCOPY
     Dosage: 90 ML; TOTAL; PO
     Route: 048
     Dates: start: 20081013, end: 20081014
  2. LISINOPRIL [Concomitant]
  3. HYDROCHLOROTHIAZIDE [Concomitant]
  4. LIPITOR [Concomitant]
  5. PROTONIX (PANTOPRAZOLE) [Concomitant]
  6. NORVASC (AMLODIPINE) [Concomitant]
  7. LORAZEPAM (LORAZEPAM) [Concomitant]
  8. ZESTRIL (LISINOPRIL) [Concomitant]
  9. FLEET ENEMA [Suspect]
     Indication: COLONOSCOPY
     Route: 054
     Dates: start: 20081013, end: 20081013

REACTIONS (24)
  - Fatigue [None]
  - Nausea [None]
  - Dysgeusia [None]
  - Blood creatine increased [None]
  - Renal disorder [None]
  - Abdominal distension [None]
  - Abdominal pain [None]
  - Vomiting [None]
  - Diarrhoea [None]
  - Pyrexia [None]
  - Dehydration [None]
  - Leukocytosis [None]
  - Hypokalaemia [None]
  - Parotitis [None]
  - Swelling face [None]
  - Ear pain [None]
  - Renal failure acute [None]
  - Pancreatitis acute [None]
  - Shock [None]
  - Dizziness [None]
  - Constipation [None]
  - Anaemia [None]
  - Hypokalaemia [None]
  - Blood calcium decreased [None]
